FAERS Safety Report 8358642-7 (Version None)
Quarter: 2012Q2

REPORT INFORMATION
  Report Type: 
  Country: None (occurrence: None)
  Receive Date: 20120514
  Receipt Date: 20120501
  Transmission Date: 20120825
  Serious: Yes (Death, Hospitalization)
  Sender: FDA-Public Use
  Company Number: GB-ROCHE-1047427

PATIENT
  Sex: Female
  Weight: 48 kg

DRUGS (1)
  1. LUCENTIS [Suspect]
     Indication: PRODUCT USED FOR UNKNOWN INDICATION
     Route: 050

REACTIONS (7)
  - MALAISE [None]
  - DEATH [None]
  - PULMONARY OEDEMA [None]
  - MYOCARDIAL ISCHAEMIA [None]
  - ABDOMINAL PAIN [None]
  - INFLAMMATORY MARKER INCREASED [None]
  - ABDOMINAL ADHESIONS [None]
